FAERS Safety Report 6733009-3 (Version None)
Quarter: 2010Q2

REPORT INFORMATION
  Report Type: 
  Country: None (occurrence: None)
  Receive Date: 20100519
  Receipt Date: 20100512
  Transmission Date: 20101027
  Serious: Yes (Life-Threatening)
  Sender: FDA-Public Use
  Company Number: TH-GILEAD-2010-0028963

PATIENT
  Sex: Male
  Weight: 66 kg

DRUGS (4)
  1. TRUVADA [Suspect]
     Indication: HIV INFECTION
     Dates: start: 20100225
  2. RALTEGRAVIR [Concomitant]
     Indication: HIV INFECTION
  3. MARAVIROC [Concomitant]
     Indication: HIV INFECTION
  4. EFAVIRENZ [Concomitant]
     Indication: HIV INFECTION
     Dates: end: 20100430

REACTIONS (1)
  - ALANINE AMINOTRANSFERASE INCREASED [None]
